FAERS Safety Report 5451975-3 (Version None)
Quarter: 2007Q3

REPORT INFORMATION
  Report Type: 
  Country: None (occurrence: None)
  Receive Date: 20070912
  Receipt Date: 20070827
  Transmission Date: 20080115
  Serious: Yes (Life-Threatening, Hospitalization, Other)
  Sender: FDA-Public Use
  Company Number: 2007US-09551

PATIENT
  Age: 18 Year
  Sex: Male

DRUGS (1)
  1. ISOPTIN SR [Suspect]
     Indication: DRUG USE FOR UNKNOWN INDICATION
     Dosage: 3200 MG, SINGLE, ORAL
     Route: 048
     Dates: start: 20070821, end: 20070821

REACTIONS (4)
  - ATRIOVENTRICULAR BLOCK COMPLETE [None]
  - HYPOTENSION [None]
  - SOMNOLENCE [None]
  - SUICIDE ATTEMPT [None]
